FAERS Safety Report 6611149-7 (Version None)
Quarter: 2010Q1

REPORT INFORMATION
  Report Type: 
  Country: None (occurrence: None)
  Receive Date: 20100302
  Receipt Date: 20100302
  Transmission Date: 20100710
  Serious: Yes (Hospitalization)
  Sender: FDA-Public Use
  Company Number: None

PATIENT
  Age: 82 Year
  Sex: Male
  Weight: 83.6 kg

DRUGS (11)
  1. COUMADIN [Suspect]
     Indication: ATRIAL FIBRILLATION
     Dosage: 2.5MG/1MG MWF/TTHSS PO CHRONIC
     Route: 048
  2. SEPTRA [Suspect]
     Indication: INFECTION
     Dosage: PO
     Route: 048
  3. POTASSIUM CHLORIDE [Concomitant]
  4. FUROSEMIDE [Concomitant]
  5. PRAVSTATIN [Concomitant]
  6. METOPROLOL TARTRATE [Concomitant]
  7. PREVACID [Concomitant]
  8. CYCLOBENZAPRINE [Concomitant]
  9. VICODIN [Concomitant]
  10. AUGMENTIN [Concomitant]
  11. PRIOR TO AUGMENTIN, A SULFA DRUG [Concomitant]

REACTIONS (4)
  - ASTHENIA [None]
  - HAEMATOMA [None]
  - INTERNATIONAL NORMALISED RATIO INCREASED [None]
  - PAIN IN EXTREMITY [None]
